FAERS Safety Report 11823687 (Version 2)
Quarter: 2016Q1

REPORT INFORMATION
  Report Type: Report from Study
  Country: US (occurrence: US)
  Receive Date: 20151210
  Receipt Date: 20160108
  Transmission Date: 20160525
  Serious: Yes (Other)
  Sender: FDA-Public Use
  Company Number: US-BAYER-2015-422822

PATIENT
  Age: 72 Year
  Sex: Male
  Weight: 92 kg

DRUGS (5)
  1. NEXAVAR [Suspect]
     Active Substance: SORAFENIB
     Indication: HEPATIC CANCER
     Dosage: 400 MG, BID
     Route: 048
     Dates: start: 20150821
  2. FLUTICASONE PROPIONATE. [Concomitant]
     Active Substance: FLUTICASONE PROPIONATE
     Dosage: 44 MCG/24HR, UNK
  3. METOPROLOL. [Concomitant]
     Active Substance: METOPROLOL
     Dosage: 25 MG, QD
     Route: 048
  4. NEXAVAR [Suspect]
     Active Substance: SORAFENIB
     Indication: HEPATIC CANCER
     Dosage: 400 MG, BID
     Route: 048
     Dates: start: 20150806
  5. LISINOPRIL. [Concomitant]
     Active Substance: LISINOPRIL
     Dosage: 2.5 MG, BID
     Route: 048

REACTIONS (18)
  - Diarrhoea [None]
  - Fatigue [None]
  - Drug dose omission [None]
  - Blood pressure increased [None]
  - Stomatitis [None]
  - Influenza [None]
  - Dysaesthesia [None]
  - Thrombocytopenia [None]
  - Rash [None]
  - Pain [None]
  - Oral pain [None]
  - Hypokalaemia [None]
  - Pain of skin [None]
  - Decreased appetite [None]
  - Headache [None]
  - Skin exfoliation [Unknown]
  - Vomiting [None]
  - Pain in extremity [None]
